FAERS Safety Report 24399733 (Version 1)
Quarter: 2024Q4

REPORT INFORMATION
  Report Type: Spontaneous
  Country: CZ (occurrence: CZ)
  Receive Date: 20241005
  Receipt Date: 20241005
  Transmission Date: 20250115
  Serious: Yes (Other)
  Sender: CELLTRION
  Company Number: CZ-PHARMAGEN-PHARMAGEN20230815a_Lit

PATIENT

DRUGS (4)
  1. TRASTUZUMAB [Suspect]
     Active Substance: TRASTUZUMAB
     Indication: Adjuvant therapy
     Dosage: UNK
     Dates: start: 20191127, end: 20200728
  2. LETROZOLE [Suspect]
     Active Substance: LETROZOLE
     Indication: Adjuvant therapy
     Dosage: UNK
     Dates: start: 20200201
  3. ANASTROZOLE [Suspect]
     Active Substance: ANASTROZOLE
     Indication: Adjuvant therapy
     Dosage: UNK
     Dates: start: 20191127, end: 20200728
  4. ZALDIAR [Concomitant]
     Active Substance: ACETAMINOPHEN\TRAMADOL HYDROCHLORIDE

REACTIONS (3)
  - Drug intolerance [Unknown]
  - Osteopenia [Unknown]
  - Osteoporosis [Unknown]

NARRATIVE: CASE EVENT DATE: 20210101
